FAERS Safety Report 9702494 (Version 1)
Quarter: 2013Q4

REPORT INFORMATION
  Report Type: Spontaneous
  Country: DE (occurrence: None)
  Receive Date: 20131120
  Receipt Date: 20131120
  Transmission Date: 20140711
  Serious: Yes (Other)
  Sender: FDA-Public Use
  Company Number: 2008574

PATIENT
  Age: 41 Year
  Sex: Female
  Weight: 58 kg

DRUGS (5)
  1. (PACLITAXEL) [Suspect]
     Indication: BREAST CANCER METASTATIC
     Dosage: 175 MG/M 2 MILLIGRAM(S) /SQ. METER ( UNKNOWN)?INTRAVENOUS (NOT OTHERWISE SPECIFIED)
     Route: 042
  2. (BEVACIZUMAB) [Concomitant]
  3. (DIMETINDENE MALEATE) [Concomitant]
  4. (RANITIDINE HYDROCHLORIDE) [Concomitant]
  5. (DEXAMETHASONE) [Concomitant]

REACTIONS (3)
  - Cough [None]
  - Dyspnoea [None]
  - Flushing [None]
